FAERS Safety Report 6161575-8 (Version None)
Quarter: 2009Q2

REPORT INFORMATION
  Report Type: 
  Country: None (occurrence: None)
  Receive Date: 20090421
  Receipt Date: 20090414
  Transmission Date: 20091009
  Serious: Yes (Other)
  Sender: FDA-Public Use
  Company Number: US-ASTRAZENECA-2009UW02190

PATIENT
  Age: 25010 Day
  Sex: Female
  Weight: 81.6 kg

DRUGS (5)
  1. ARIMIDEX [Suspect]
     Dosage: UNKNOWN
     Route: 048
     Dates: start: 20040501
  2. ARIMIDEX [Suspect]
     Dosage: UNKNOWN
     Route: 048
  3. SYNTHROID [Concomitant]
  4. DIOVAN [Concomitant]
  5. SINEMET [Concomitant]

REACTIONS (1)
  - PEMPHIGOID [None]
